FAERS Safety Report 7505201-1 (Version None)
Quarter: 2011Q2

REPORT INFORMATION
  Report Type: 
  Country: None (occurrence: None)
  Receive Date: 20110526
  Receipt Date: 20110514
  Transmission Date: 20111010
  Serious: Yes (Other)
  Sender: FDA-Public Use
  Company Number: GB-JNJFOC-20110507052

PATIENT
  Sex: Female

DRUGS (3)
  1. ANTITHYROID DRUG, UNSPECIFIED [Concomitant]
     Indication: THYROID DISORDER
     Route: 065
  2. RISPERDAL CONSTA [Suspect]
     Route: 030
  3. RISPERDAL CONSTA [Suspect]
     Indication: PRODUCT USED FOR UNKNOWN INDICATION
     Route: 030

REACTIONS (15)
  - SPEECH DISORDER [None]
  - EAR PAIN [None]
  - EPISTAXIS [None]
  - OROPHARYNGEAL PAIN [None]
  - MENSTRUATION IRREGULAR [None]
  - EYE PAIN [None]
  - MIGRAINE [None]
  - LOCAL SWELLING [None]
  - TEMPERATURE REGULATION DISORDER [None]
  - MUSCLE TIGHTNESS [None]
  - MUSCULOSKELETAL STIFFNESS [None]
  - EYE SWELLING [None]
  - HYPOAESTHESIA [None]
  - AMENORRHOEA [None]
  - PHOTOPHOBIA [None]
